FAERS Safety Report 4269715-2 (Version None)
Quarter: 2004Q1

REPORT INFORMATION
  Report Type: 
  Country: None (occurrence: None)
  Receive Date: 20040112
  Receipt Date: 20040101
  Transmission Date: 20041129
  Serious: Yes (Death)
  Sender: FDA-Public Use
  Company Number: US-JNJFOC-20040100858

PATIENT
  Age: 67 Year
  Sex: Female

DRUGS (2)
  1. LEVAQUIN [Suspect]
     Indication: DRUG USE FOR UNKNOWN INDICATION
     Dosage: INTRAVENOUS
     Route: 042
     Dates: start: 20031229, end: 20031229
  2. LEVAQUIN [Suspect]
     Indication: DRUG USE FOR UNKNOWN INDICATION
     Dosage: 500 MG, 1 IN 1 DAY, ORAL
     Route: 048
     Dates: start: 20031230, end: 20031231

REACTIONS (3)
  - MYOSITIS [None]
  - RHABDOMYOLYSIS [None]
  - VENTRICULAR DYSFUNCTION [None]
